FAERS Safety Report 13454909 (Version 2)
Quarter: 2017Q2

REPORT INFORMATION
  Report Type: Report from Study
  Country: US (occurrence: US)
  Receive Date: 20170419
  Receipt Date: 20170505
  Transmission Date: 20170830
  Serious: Yes (Death)
  Sender: FDA-Public Use
  Company Number: US-ASTELLAS-2017US014971

PATIENT
  Age: 81 Year
  Sex: Female

DRUGS (7)
  1. MYCOPHENOLATE MOFETIL. [Concomitant]
     Active Substance: MYCOPHENOLATE MOFETIL
     Indication: IMMUNOSUPPRESSANT DRUG THERAPY
     Dosage: 2000 UNKNOWN UNIT, TOTAL DAILY DOSE
     Route: 065
     Dates: start: 20160905, end: 20160922
  2. PREDNISONE. [Concomitant]
     Active Substance: PREDNISONE
     Indication: IMMUNOSUPPRESSANT DRUG THERAPY
     Dosage: 20 UNKNOWN UNIT TOTAL DAILY DOSE
     Route: 065
     Dates: start: 20160907, end: 20160915
  3. TACROLIMUS. [Suspect]
     Active Substance: TACROLIMUS
     Indication: RENAL TRANSPLANT
     Dosage: 7.5 MG, ONCE DAILY (TOTAL DAILY DOSE)
     Route: 065
     Dates: start: 20161021
  4. MYCOPHENOLATE MOFETIL. [Concomitant]
     Active Substance: MYCOPHENOLATE MOFETIL
     Dosage: 1000 UNKNOWN UNIT, TOTAL DAILY DOSE
     Route: 065
     Dates: start: 20160922
  5. PREDNISONE. [Concomitant]
     Active Substance: PREDNISONE
     Dosage: 10 UNKNOWN UNIT TOTAL DAILY DOSE
     Route: 065
     Dates: start: 20160915, end: 20160922
  6. PREDNISONE. [Concomitant]
     Active Substance: PREDNISONE
     Dosage: 5 UNKNOWN UNIT TOTAL DAILY DOSE
     Route: 065
     Dates: start: 20160922
  7. MYCOPHENOLATE MOFETIL. [Concomitant]
     Active Substance: MYCOPHENOLATE MOFETIL
     Dosage: 1500 UNKNOWN UNIT, TOTAL DAILY DOSE
     Route: 065
     Dates: start: 20160922, end: 20160926

REACTIONS (1)
  - Ischaemic stroke [Fatal]

NARRATIVE: CASE EVENT DATE: 20161030
